FAERS Safety Report 15219511 (Version 1)
Quarter: 2018Q3

REPORT INFORMATION
  Report Type: Spontaneous
  Country: US (occurrence: US)
  Receive Date: 20180731
  Receipt Date: 20180731
  Transmission Date: 20181010
  Serious: No
  Sender: FDA-Public Use
  Company Number: US-APOTEX-2017AP019887

PATIENT
  Sex: Female

DRUGS (5)
  1. HYDROCHLOROTHIAZIDE. [Concomitant]
     Active Substance: HYDROCHLOROTHIAZIDE
     Indication: BLOOD PRESSURE ABNORMAL
     Route: 065
  2. ATENOLOL. [Concomitant]
     Active Substance: ATENOLOL
     Indication: BLOOD PRESSURE ABNORMAL
     Route: 065
  3. RISEDRONATE SODIUM TABLETS USP [Suspect]
     Active Substance: RISEDRONATE SODIUM
     Indication: PRODUCT USED FOR UNKNOWN INDICATION
     Dosage: UNK, Q.WK. (1 EVERY WEEK)
     Route: 065
  4. ENALAPRIL [Concomitant]
     Active Substance: ENALAPRIL
     Indication: BLOOD PRESSURE ABNORMAL
     Route: 065
  5. ROSUVASTATIN. [Concomitant]
     Active Substance: ROSUVASTATIN
     Indication: BLOOD CHOLESTEROL ABNORMAL
     Route: 065

REACTIONS (2)
  - Renal disorder [Recovering/Resolving]
  - Blood disorder [Recovering/Resolving]
